FAERS Safety Report 23074949 (Version 3)
Quarter: 2024Q3

REPORT INFORMATION
  Report Type: Spontaneous
  Country: US (occurrence: US)
  Receive Date: 20231017
  Receipt Date: 20240801
  Transmission Date: 20241017
  Serious: Yes (Other)
  Sender: PFIZER
  Company Number: US-PFIZER INC-PV202300168502

PATIENT
  Age: 53 Year
  Sex: Female

DRUGS (2)
  1. XELJANZ XR [Suspect]
     Active Substance: TOFACITINIB CITRATE
     Indication: Rheumatoid arthritis
     Dosage: 11 MG
     Dates: start: 20230104
  2. XELJANZ XR [Suspect]
     Active Substance: TOFACITINIB CITRATE
     Indication: Arthritis

REACTIONS (6)
  - Wrist surgery [Unknown]
  - Neurogenic cough [Recovering/Resolving]
  - Condition aggravated [Unknown]
  - Insomnia [Not Recovered/Not Resolved]
  - Respiratory tract infection [Unknown]
  - Dysphagia [Unknown]

NARRATIVE: CASE EVENT DATE: 20231012
